FAERS Safety Report 19881935 (Version 1)
Quarter: 2021Q3

REPORT INFORMATION
  Report Type: Spontaneous
  Country: GB (occurrence: GB)
  Receive Date: 20210924
  Receipt Date: 20210924
  Transmission Date: 20211014
  Serious: Yes (Other)
  Sender: FDA-Public Use
  Company Number: GB-ASCEND THERAPEUTICS US, LLC-2118792

PATIENT
  Age: 51 Year
  Sex: Female
  Weight: 63.04 kg

DRUGS (5)
  1. ESTROGEL [Suspect]
     Active Substance: ESTRADIOL
     Indication: MENOPAUSAL SYMPTOMS
     Route: 061
     Dates: start: 20210707, end: 20210811
  2. UTROGESTAN(PROGESTERONE) [Concomitant]
     Route: 065
  3. OESTROGEL(ESTRADIOL)(GEL) [Suspect]
     Active Substance: ESTRADIOL
     Route: 061
     Dates: start: 20210707, end: 20210811
  4. ESTROGEL [Suspect]
     Active Substance: ESTRADIOL
     Route: 065
  5. ESTROGEL [Suspect]
     Active Substance: ESTRADIOL

REACTIONS (7)
  - Anxiety [Recovered/Resolved]
  - Disturbance in attention [Recovered/Resolved]
  - Fatigue [Recovered/Resolved]
  - Therapeutic response decreased [None]
  - Product label on wrong product [None]
  - Menopausal symptoms [Recovered/Resolved]
  - Irritability [Recovered/Resolved]

NARRATIVE: CASE EVENT DATE: 20210707
